FAERS Safety Report 10204807 (Version 1)
Quarter: 2014Q2

REPORT INFORMATION
  Report Type: Spontaneous
  Country: US (occurrence: None)
  Receive Date: 20140527
  Receipt Date: 20140527
  Transmission Date: 20141212
  Serious: Yes (Disabling, Other)
  Sender: FDA-Public Use
  Company Number: None

PATIENT
  Age: 59 Year
  Sex: Female

DRUGS (2)
  1. ZOMETA [Suspect]
     Indication: BREAST CANCER STAGE IV
     Dosage: UNKNOWN, MONTHLY, INTO A VEIN
  2. ZOMETA [Suspect]
     Indication: HER-2 POSITIVE BREAST CANCER
     Dosage: UNKNOWN, MONTHLY, INTO A VEIN

REACTIONS (1)
  - Loose tooth [None]
